FAERS Safety Report 18145413 (Version 1)
Quarter: 2020Q3

REPORT INFORMATION
  Report Type: Spontaneous
  Country: US (occurrence: US)
  Receive Date: 20200813
  Receipt Date: 20200813
  Transmission Date: 20201103
  Serious: Yes (Other)
  Sender: FDA-Public Use
  Company Number: US-HIKMA PHARMACEUTICALS USA INC.-US-H14001-20-03822

PATIENT
  Sex: Female

DRUGS (4)
  1. CYCLOPHOSPHAMIDE. [Suspect]
     Active Substance: CYCLOPHOSPHAMIDE
     Indication: CUTANEOUS T-CELL LYMPHOMA
     Dosage: UNKNOWN
     Route: 042
  2. DOXORUBICIN [Suspect]
     Active Substance: DOXORUBICIN
     Indication: CUTANEOUS T-CELL LYMPHOMA
     Dosage: UNKNOWN
     Route: 042
  3. PREDNISONE. [Suspect]
     Active Substance: PREDNISONE
     Indication: CUTANEOUS T-CELL LYMPHOMA
     Dosage: UNKNOWN
     Route: 048
  4. VINCRISTINE [Suspect]
     Active Substance: VINCRISTINE
     Indication: CUTANEOUS T-CELL LYMPHOMA
     Dosage: UNKNOWN
     Route: 042

REACTIONS (3)
  - Urosepsis [Unknown]
  - Skin lesion [Unknown]
  - Superinfection [Unknown]
